FAERS Safety Report 7092460-5 (Version None)
Quarter: 2010Q4

REPORT INFORMATION
  Report Type: 
  Country: None (occurrence: None)
  Receive Date: 20101108
  Receipt Date: 20101108
  Transmission Date: 20110411
  Serious: Yes (Hospitalization)
  Sender: FDA-Public Use
  Company Number: None

PATIENT
  Sex: Male

DRUGS (1)
  1. RANIBIZUMAB [Suspect]
     Dosage: 0.05 ML Q4W IVT
     Route: 042

REACTIONS (2)
  - FALL [None]
  - SUBDURAL HAEMATOMA [None]
